FAERS Safety Report 4878311-5 (Version None)
Quarter: 2006Q1

REPORT INFORMATION
  Report Type: 
  Country: None (occurrence: None)
  Receive Date: 20060111
  Receipt Date: 20060102
  Transmission Date: 20060701
  Serious: Yes (Hospitalization)
  Sender: FDA-Public Use
  Company Number: ES-MERCK-0601ESP00007

PATIENT
  Age: 66 Year
  Sex: Male

DRUGS (4)
  1. VIOXX [Suspect]
     Indication: RHEUMATOID ARTHRITIS
     Route: 048
     Dates: start: 20020601, end: 20041001
  2. IBUPROFEN [Concomitant]
     Indication: RHEUMATOID ARTHRITIS
     Route: 065
     Dates: start: 20041001
  3. OMEPRAZOLE [Concomitant]
     Route: 065
     Dates: start: 20041001
  4. ETORICOXIB [Suspect]
     Indication: RHEUMATOID ARTHRITIS
     Route: 065
     Dates: start: 19990101, end: 20020601

REACTIONS (2)
  - ACUTE MYOCARDIAL INFARCTION [None]
  - DRUG TOXICITY [None]
